FAERS Safety Report 9946367 (Version 2)
Quarter: 2014Q1

REPORT INFORMATION
  Report Type: Spontaneous
  Country: US (occurrence: US)
  Receive Date: 20140303
  Receipt Date: 20140303
  Transmission Date: 20141002
  Serious: No
  Sender: FDA-Public Use
  Company Number: US-AMGEN-USASP2014002863

PATIENT
  Age: 71 Year
  Sex: Female
  Weight: 63.49 kg

DRUGS (6)
  1. ENBREL [Suspect]
     Indication: PRODUCT USED FOR UNKNOWN INDICATION
     Dosage: 50 MG, 2 TIMES/WK
     Route: 058
  2. JANUVIA [Concomitant]
     Dosage: 25 MG, UNK
     Route: 048
  3. XANAX [Concomitant]
     Dosage: 0.5 MG, UNK
     Route: 048
  4. LIPITOR [Concomitant]
     Dosage: 10 MG, UNK
     Route: 048
  5. TARKA [Concomitant]
     Dosage: 1-240 CR
     Route: 048
  6. METFORMIN [Concomitant]
     Dosage: 500 MG, UNK
     Route: 048

REACTIONS (3)
  - Throat irritation [Unknown]
  - White blood cell count increased [Unknown]
  - Influenza [Recovered/Resolved]
